FAERS Safety Report 4378702-5 (Version None)
Quarter: 2004Q2

REPORT INFORMATION
  Report Type: 
  Country: None (occurrence: None)
  Receive Date: 20040610
  Receipt Date: 20040528
  Transmission Date: 20050107
  Serious: Yes (Other)
  Sender: FDA-Public Use
  Company Number: HQWYE823511MAY04

PATIENT
  Age: 64 Year
  Sex: Male

DRUGS (4)
  1. CORDAREX (AMIODARONE, TABLET) [Suspect]
     Indication: ATRIAL FIBRILLATION
     Dosage: 200 MG 1X PER 1 DAY
     Route: 048
     Dates: start: 20020101, end: 20040319
  2. CONCOR (BISOPROLOL) [Concomitant]
  3. ACETYLSALICYLIC ACID SRT [Concomitant]
  4. ENALAPRIL MALEATE [Concomitant]

REACTIONS (3)
  - ATRIAL FIBRILLATION [None]
  - CONDITION AGGRAVATED [None]
  - HYPERTHYROIDISM [None]
